FAERS Safety Report 21034369 (Version 1)
Quarter: 2022Q3

REPORT INFORMATION
  Report Type: Spontaneous
  Country: FR (occurrence: FR)
  Receive Date: 20220701
  Receipt Date: 20220701
  Transmission Date: 20221026
  Serious: Yes (Hospitalization)
  Sender: FDA-Public Use
  Company Number: None

PATIENT
  Age: 18 Year
  Sex: Female

DRUGS (2)
  1. KETOPROFEN [Suspect]
     Active Substance: KETOPROFEN
     Indication: Intentional overdose
     Dosage: UNIT DOSE : 9 DF , DURATION : 1 DAYS
     Route: 048
     Dates: start: 20210914, end: 20210914
  2. ACETAMINOPHEN\BELLADONNA LEAF\CAFFEINE\OPIUM [Suspect]
     Active Substance: ACETAMINOPHEN\BELLADONNA LEAF\CAFFEINE\OPIUM
     Indication: Intentional overdose
     Dosage: UNIT DOSE : 3 DF ,DURATION : 1 DAYS
     Route: 048
     Dates: start: 20210914, end: 20210914

REACTIONS (2)
  - Poisoning deliberate [Recovered/Resolved]
  - Abdominal pain upper [Recovered/Resolved]

NARRATIVE: CASE EVENT DATE: 20210914
